FAERS Safety Report 6173452-7 (Version None)
Quarter: 2009Q2

REPORT INFORMATION
  Report Type: 
  Country: None (occurrence: None)
  Receive Date: 20090430
  Receipt Date: 20090420
  Transmission Date: 20091009
  Serious: Yes (Hospitalization)
  Sender: FDA-Public Use
  Company Number: US-WATSON-2009-02708

PATIENT
  Age: 32 Year
  Sex: Female

DRUGS (2)
  1. BENAZEPRIL HYDROCHLORIDE (WATSON LABORATORIES) [Suspect]
     Indication: HYPERTENSION
     Dosage: 10 MG, DAILY
     Route: 048
     Dates: start: 20090101
  2. BENAZEPRIL HYDROCHLORIDE (WATSON LABORATORIES) [Suspect]
     Dosage: 40 MG, DAILY
     Route: 065
     Dates: start: 20090101

REACTIONS (1)
  - CHOLESTASIS [None]
